FAERS Safety Report 9771302 (Version 2)
Quarter: 2013Q4

REPORT INFORMATION
  Report Type: Report from Study
  Country: DE (occurrence: DE)
  Receive Date: 20131218
  Receipt Date: 20131218
  Transmission Date: 20140711
  Serious: Yes (Death, Life-Threatening, Hospitalization, Other)
  Sender: FDA-Public Use
  Company Number: DE-ABBVIE-11P-062-0847484-00

PATIENT
  Age: 77 Year
  Sex: Female

DRUGS (13)
  1. HUMIRA 40 MG/ 0.8 ML PRE-FILLED SYRINGE [Suspect]
     Indication: RHEUMATOID ARTHRITIS
     Route: 058
     Dates: start: 201006, end: 201006
  2. ETANERCEPT [Suspect]
     Indication: PRODUCT USED FOR UNKNOWN INDICATION
     Dates: start: 201007, end: 20101220
  3. LEFLUNOMIDE [Concomitant]
     Indication: PRODUCT USED FOR UNKNOWN INDICATION
     Dates: start: 200812, end: 20101220
  4. ISMN 60 [Concomitant]
     Indication: PRODUCT USED FOR UNKNOWN INDICATION
  5. ASPIRINE 50 [Concomitant]
     Indication: PRODUCT USED FOR UNKNOWN INDICATION
  6. PREDNISOLONE 5 [Concomitant]
     Indication: PRODUCT USED FOR UNKNOWN INDICATION
  7. NEXIUM 10 [Concomitant]
     Indication: PRODUCT USED FOR UNKNOWN INDICATION
  8. ARANA 20 [Concomitant]
     Indication: PRODUCT USED FOR UNKNOWN INDICATION
  9. BISOPROLOL 10 [Concomitant]
     Indication: PRODUCT USED FOR UNKNOWN INDICATION
  10. CORVATON 8 [Concomitant]
     Indication: PRODUCT USED FOR UNKNOWN INDICATION
  11. ACTRAPID [Concomitant]
     Indication: PRODUCT USED FOR UNKNOWN INDICATION
     Dosage: ACCORDING TO BLOOD GLUCOSE
  12. PROTAPHANE 10 [Concomitant]
     Indication: PRODUCT USED FOR UNKNOWN INDICATION
  13. MTX [Concomitant]
     Indication: PRODUCT USED FOR UNKNOWN INDICATION
     Dates: start: 2001, end: 200901

REACTIONS (12)
  - Cerebral infarction [Fatal]
  - Metastatic bronchial carcinoma [Unknown]
  - Troponin T increased [Unknown]
  - Cough [Unknown]
  - Coronary artery disease [Unknown]
  - Coronary artery stenosis [Unknown]
  - Pulmonary embolism [Unknown]
  - Respiratory failure [Unknown]
  - Acute myocardial infarction [Recovered/Resolved]
  - Pulmonary mass [Unknown]
  - Chest pain [Recovered/Resolved]
  - Dyspnoea [Recovered/Resolved]
